FAERS Safety Report 5057978-5 (Version None)
Quarter: 2006Q3

REPORT INFORMATION
  Report Type: 
  Country: None (occurrence: None)
  Receive Date: 20060721
  Receipt Date: 20060428
  Transmission Date: 20061208
  Serious: No
  Sender: FDA-Public Use
  Company Number: US-GLAXOSMITHKLINE-A0603636A

PATIENT
  Age: 61 Year
  Sex: Male

DRUGS (7)
  1. AVANDIA [Suspect]
     Dosage: 4MG PER DAY
     Route: 048
     Dates: start: 20031105
  2. METFORMIN [Concomitant]
  3. TERAZOSIN HCL [Concomitant]
  4. DIOVAN [Concomitant]
  5. LIPITOR [Concomitant]
  6. ALLOPURINOL [Concomitant]
  7. INDAPAMIDE [Concomitant]

REACTIONS (1)
  - DRUG INEFFECTIVE [None]
